FAERS Safety Report 14097583 (Version 2)
Quarter: 2017Q4

REPORT INFORMATION
  Report Type: Spontaneous
  Country: FR (occurrence: FR)
  Receive Date: 20171017
  Receipt Date: 20171117
  Transmission Date: 20180321
  Serious: Yes (Other)
  Sender: FDA-Public Use
  Company Number: FR-MERCK KGAA-2030294

PATIENT
  Sex: Female

DRUGS (2)
  1. NOVOTHYROX [Suspect]
     Active Substance: LEVOTHYROXINE SODIUM
     Indication: PRODUCT USED FOR UNKNOWN INDICATION
  2. COLTRAMYL [Concomitant]
     Active Substance: THIOCOLCHICOSIDE

REACTIONS (6)
  - Tremor [None]
  - Hypothyroidism [None]
  - Insomnia [None]
  - Muscle contractions involuntary [None]
  - Suicide attempt [None]
  - Hypokinesia [None]
